FAERS Safety Report 9134477 (Version 1)
Quarter: 2013Q1

REPORT INFORMATION
  Report Type: Spontaneous
  Country: US (occurrence: US)
  Receive Date: 20130304
  Receipt Date: 20130304
  Transmission Date: 20140127
  Serious: Yes (Hospitalization)
  Sender: FDA-Public Use
  Company Number: US-BRISTOL-MYERS SQUIBB COMPANY-17408865

PATIENT
  Age: 47 Year
  Sex: Female
  Weight: 109.75 kg

DRUGS (1)
  1. ORENCIA [Suspect]
     Indication: RHEUMATOID ARTHRITIS
     Dosage: INFUSION WAS ON 18FEB2013
     Route: 042

REACTIONS (3)
  - Local swelling [Unknown]
  - Influenza [Unknown]
  - Pain in extremity [Unknown]
